FAERS Safety Report 9897954 (Version 1)
Quarter: 2014Q1

REPORT INFORMATION
  Report Type: Spontaneous
  Country: US (occurrence: US)
  Receive Date: 20140214
  Receipt Date: 20140214
  Transmission Date: 20141002
  Serious: No
  Sender: FDA-Public Use
  Company Number: US-PFIZER INC-2014041598

PATIENT
  Sex: Female

DRUGS (1)
  1. LYRICA [Suspect]
     Indication: FIBROMYALGIA
     Dosage: 50 MG, UNK

REACTIONS (5)
  - Pruritus [Not Recovered/Not Resolved]
  - Ear pain [Not Recovered/Not Resolved]
  - Hypoaesthesia oral [Not Recovered/Not Resolved]
  - Tongue disorder [Not Recovered/Not Resolved]
  - Fibromyalgia [Not Recovered/Not Resolved]
